FAERS Safety Report 8498274 (Version 8)
Quarter: 2013Q4

REPORT INFORMATION
  Report Type: Report from Study
  Country: CA (occurrence: CA)
  Receive Date: 20120406
  Receipt Date: 20131125
  Transmission Date: 20140711
  Serious: Yes (Death, Hospitalization, Other)
  Sender: FDA-Public Use
  Company Number: PHHY2011CA73433

PATIENT
  Age: 80 Year
  Sex: Male

DRUGS (3)
  1. SANDOSTATIN LAR [Suspect]
     Indication: NEUROENDOCRINE TUMOUR
     Dosage: 30 MG, EVERY 4 WEEKS
     Route: 030
     Dates: start: 20110810
  2. SANDOSTATIN LAR [Suspect]
     Dosage: 60 MG, QMO
     Route: 030
     Dates: start: 20120518
  3. SANDOSTATIN LAR [Suspect]
     Dosage: 60 MG, EVERY 4 WEEKS
     Route: 030
     Dates: end: 20120817

REACTIONS (22)
  - Renal failure [Fatal]
  - Pulmonary embolism [Unknown]
  - Blood pressure systolic increased [Unknown]
  - Tremor [Unknown]
  - Blood blister [Unknown]
  - Haemorrhage [Unknown]
  - Diarrhoea [Not Recovered/Not Resolved]
  - Haemoglobin decreased [Unknown]
  - Stress urinary incontinence [Unknown]
  - Renal impairment [Unknown]
  - Skin discolouration [Unknown]
  - Local swelling [Unknown]
  - Injection site haemorrhage [Unknown]
  - Pain in extremity [Unknown]
  - Asthenia [Unknown]
  - Hepatic lesion [Unknown]
  - Hyperhidrosis [Unknown]
  - Weight decreased [Unknown]
  - Abdominal pain lower [Unknown]
  - Faeces pale [Unknown]
  - Dyspnoea [Unknown]
  - Drug ineffective [Unknown]
